FAERS Safety Report 12179615 (Version 1)
Quarter: 2016Q1

REPORT INFORMATION
  Report Type: Spontaneous
  Country: FR (occurrence: FR)
  Receive Date: 20160314
  Receipt Date: 20160314
  Transmission Date: 20160526
  Serious: Yes (Hospitalization)
  Sender: FDA-Public Use
  Company Number: FR-SA-2016SA047842

PATIENT
  Age: 62 Year
  Sex: Male

DRUGS (6)
  1. TERCIAN [Suspect]
     Active Substance: CYAMEMAZINE
     Indication: BIPOLAR DISORDER
     Dosage: 1 TABLET IN THE EVENING
     Route: 048
     Dates: start: 1993, end: 20160220
  2. STILNOX [Suspect]
     Active Substance: ZOLPIDEM TARTRATE
     Indication: BIPOLAR DISORDER
     Dosage: 1 TABLET IN THE EVENING
     Route: 048
     Dates: start: 1993
  3. TAHOR [Suspect]
     Active Substance: ATORVASTATIN CALCIUM
     Indication: DYSLIPIDAEMIA
     Dosage: 1 TABLET IN THE EVENING
     Route: 048
     Dates: start: 1993, end: 20160220
  4. TEMESTA [Suspect]
     Active Substance: LORAZEPAM
     Indication: BIPOLAR DISORDER
     Dosage: 0.5 TO 1 MG AT THE END OF MORNING
     Route: 048
     Dates: start: 1993
  5. OLANZAPINE. [Suspect]
     Active Substance: OLANZAPINE
     Indication: BIPOLAR DISORDER
     Dosage: 2 TABLETS IN THE EVENING
     Route: 048
     Dates: start: 1993, end: 20160219
  6. DEPAKOTE [Suspect]
     Active Substance: DIVALPROEX SODIUM
     Indication: BIPOLAR DISORDER
     Dosage: 1 TABLET IN THE MORNING, 1 TABLET AT NOON AND 2 TABLETS IN THE EVENING
     Route: 048
     Dates: start: 1993

REACTIONS (2)
  - Blood creatine phosphokinase increased [Recovered/Resolved]
  - Confusional state [Recovered/Resolved]

NARRATIVE: CASE EVENT DATE: 20160220
